FAERS Safety Report 5484866-2 (Version None)
Quarter: 2007Q4

REPORT INFORMATION
  Report Type: 
  Country: None (occurrence: None)
  Receive Date: 20071010
  Receipt Date: 20070920
  Transmission Date: 20080405
  Serious: Yes (Other)
  Sender: FDA-Public Use
  Company Number: B0488989A

PATIENT
  Age: 9 Year
  Sex: 0
  Weight: 50.6 kg

DRUGS (2)
  1. CEFUROXIME SODIUM [Suspect]
     Dosage: 200 MG/KG/ PER DAY
  2. GENTAMICIN SULPHATE                   (FORMULATION UNKNOWN) [Suspect]
     Dosage: 10 MG/KG/PER DAY

REACTIONS (2)
  - RENAL FAILURE ACUTE [None]
  - RENAL TUBULAR NECROSIS [None]
